FAERS Safety Report 9819960 (Version 3)
Quarter: 2013Q4

REPORT INFORMATION
  Report Type: Spontaneous
  Country: US (occurrence: None)
  Receive Date: 20130107
  Receipt Date: 20131226
  Transmission Date: 20140711
  Serious: Yes (Other)
  Sender: FDA-Public Use
  Company Number: PHEH2012US018382

PATIENT
  Age: 52 Year
  Sex: Female

DRUGS (4)
  1. GILENYA [Suspect]
     Indication: MULTIPLE SCLEROSIS
     Dosage: 0.5 MG, QD, ORAL
     Route: 048
     Dates: start: 20111107
  2. LOPRESSOR (METOPROLOL TARTRATE) [Concomitant]
  3. LASIX (FUROSEMIDE) [Concomitant]
  4. ATIVAN (LORAZEPAM) [Concomitant]

REACTIONS (4)
  - Feeling abnormal [None]
  - Gait disturbance [None]
  - Incontinence [None]
  - Drug ineffective [None]
